FAERS Safety Report 7574261-4 (Version None)
Quarter: 2011Q2

REPORT INFORMATION
  Report Type: 
  Country: None (occurrence: None)
  Receive Date: 20110627
  Receipt Date: 20110623
  Transmission Date: 20111010
  Serious: Yes (Life-Threatening, Hospitalization)
  Sender: FDA-Public Use
  Company Number: SE-ROCHE-785361

PATIENT

DRUGS (2)
  1. BEVACIZUMAB [Suspect]
     Dosage: LAST DOSE PRIOR TO THE EVENT: 8 JUNE 2011
     Route: 065
     Dates: start: 20110311
  2. CAPECITABINE [Suspect]
     Dosage: LAST DOSE PRIOR TO THE EVENT: 8 JUNE 2011
     Route: 065
     Dates: start: 20110311

REACTIONS (2)
  - EMBOLISM ARTERIAL [None]
  - COLITIS [None]
